FAERS Safety Report 10154863 (Version 1)
Quarter: 2014Q2

REPORT INFORMATION
  Report Type: Spontaneous
  Country: GB (occurrence: GB)
  Receive Date: 20140506
  Receipt Date: 20140506
  Transmission Date: 20141212
  Serious: Yes (Disabling, Other)
  Sender: FDA-Public Use
  Company Number: GB-B.I. PHARMACEUTICALS,INC./RIDGEFIELD-2014-BI-19547UK

PATIENT
  Age: 55 Year
  Sex: Female
  Weight: 75 kg

DRUGS (3)
  1. PRADAXA [Suspect]
     Indication: ATRIAL FIBRILLATION
     Dosage: 300 MG
     Route: 048
     Dates: start: 20140301, end: 20140316
  2. BISOPROLOL [Concomitant]
     Route: 065
  3. RAMPRIL [Concomitant]
     Route: 065

REACTIONS (2)
  - Gastritis [Recovered/Resolved]
  - Pain [Recovered/Resolved]
